FAERS Safety Report 4522473-6 (Version None)
Quarter: 2004Q4

REPORT INFORMATION
  Report Type: 
  Country: None (occurrence: None)
  Receive Date: 20041207
  Receipt Date: 20041119
  Transmission Date: 20050328
  Serious: Yes (Hospitalization, Other)
  Sender: FDA-Public Use
  Company Number: USA041080326

PATIENT
  Age: 80 Year
  Sex: Female

DRUGS (12)
  1. CYMBALTA [Suspect]
     Indication: DEPRESSION
     Dosage: 60 MG DAY
     Dates: start: 20040928, end: 20040930
  2. PROTONIX [Concomitant]
  3. AZULFIDINE [Concomitant]
  4. APRESOLINE [Concomitant]
  5. MAGNESIUM OXIDE [Concomitant]
  6. DIAZIDE (GLICLAZIDE) [Concomitant]
  7. LORTAB [Concomitant]
  8. VERAPAMIL [Concomitant]
  9. POTASSIUM [Concomitant]
  10. LASIX [Concomitant]
  11. ZOCOR [Concomitant]
  12. PROCRIT (ERYTHROPOIETIN) [Concomitant]

REACTIONS (8)
  - BLOOD CALCIUM DECREASED [None]
  - BLOOD SODIUM DECREASED [None]
  - HAEMATOCRIT DECREASED [None]
  - HAEMOGLOBIN DECREASED [None]
  - PROTEIN TOTAL DECREASED [None]
  - PULMONARY EMBOLISM [None]
  - RENAL HAEMORRHAGE [None]
  - STEVENS-JOHNSON SYNDROME [None]
